FAERS Safety Report 25452475 (Version 2)
Quarter: 2025Q2

REPORT INFORMATION
  Report Type: Report from Study
  Country: US (occurrence: US)
  Receive Date: 20250618
  Receipt Date: 20250627
  Transmission Date: 20250716
  Serious: Yes (Hospitalization, Other)
  Sender: EMD SERONO INC
  Company Number: US-Merck Healthcare KGaA-2025029966

PATIENT
  Age: 73 Year
  Sex: Female

DRUGS (1)
  1. MAVENCLAD [Suspect]
     Active Substance: CLADRIBINE
     Indication: Multiple sclerosis

REACTIONS (3)
  - Cerebrovascular accident [Not Recovered/Not Resolved]
  - Lacunar infarction [Unknown]
  - Internal capsule infarction [Unknown]

NARRATIVE: CASE EVENT DATE: 20250519
